FAERS Safety Report 8455282 (Version 6)
Quarter: 2014Q1

REPORT INFORMATION
  Report Type: Spontaneous
  Country: US (occurrence: US)
  Receive Date: 20120313
  Receipt Date: 20140121
  Transmission Date: 20141002
  Serious: Yes (Hospitalization, Disabling)
  Sender: FDA-Public Use
  Company Number: US-PFIZER INC-2012062158

PATIENT
  Age: 80 Year
  Sex: Female
  Weight: 90.7 kg

DRUGS (27)
  1. EFFEXOR XR [Suspect]
     Indication: DEPRESSION
     Dosage: 75 MG, 3X/DAY
     Route: 048
     Dates: start: 201103
  2. EFFEXOR XR [Suspect]
     Indication: NERVOUSNESS
  3. LYRICA [Suspect]
     Indication: FIBROMYALGIA
     Dosage: 100 MG, 3X/DAY
  4. LYRICA [Suspect]
     Dosage: 100 MG, 2X/DAY
  5. CELEBREX [Suspect]
     Indication: ARTHRITIS
     Dosage: 200 MG, 1X/DAY
     Route: 048
  6. CELEBREX [Suspect]
     Indication: ASTHENIA
  7. CELEBREX [Suspect]
     Indication: ARTHRITIS
  8. XANAX [Suspect]
     Dosage: 0.5 MG, AS NEEDED
  9. PLAVIX [Concomitant]
     Indication: CARDIAC DISORDER
     Dosage: 75 MG, 1X/DAY
  10. NITROGLYCERIN [Concomitant]
     Dosage: 2.5 MG, 2X/DAY
  11. LASIX [Concomitant]
     Dosage: 20 MG, 2X/DAY
  12. SIMVASTATIN [Concomitant]
     Dosage: 80 MG, 1X/DAY
  13. HYDROCODONE, PARACETAMOL [Concomitant]
     Dosage: 500 MG, AS NEEDED
  14. ASPIRIN [Concomitant]
     Dosage: UNK, 2X/DAY
  15. FOLIC ACID [Concomitant]
     Dosage: 800 UG, 1X/DAY
  16. MAGNESIUM [Concomitant]
     Dosage: 250 MG, 1X/DAY
  17. BIOTIN [Concomitant]
     Dosage: 1000 UG, 1X/DAY
  18. LECITHIN [Concomitant]
     Dosage: 400 MG, 1X/DAY
  19. MULTIVITAMINS [Concomitant]
     Dosage: UNK,1X/DAY
  20. COQ-10 [Concomitant]
     Dosage: UNK, 1X/DAY
  21. L-CARNITINE [Concomitant]
     Dosage: UNK, 1X/DAY
  22. POTASSIUM CHLORIDE [Concomitant]
     Dosage: 10 MEQ, 2X/DAY
  23. POTASSIUM CHLORIDE [Concomitant]
     Dosage: UNK
  24. CELEXA [Concomitant]
     Dosage: 20 MG, AT BEDTIME
  25. CRESTOR [Concomitant]
     Dosage: 10 MG, 1X/DAY
  26. VITAMIN C [Concomitant]
     Dosage: UNK, 1X/DAY
  27. CLOPIDOGREL [Concomitant]
     Dosage: UNK

REACTIONS (5)
  - Off label use [Unknown]
  - Fall [Unknown]
  - Fall [Unknown]
  - Wheelchair user [Not Recovered/Not Resolved]
  - Weight increased [Unknown]
